FAERS Safety Report 8464072-X (Version None)
Quarter: 2012Q2

REPORT INFORMATION
  Report Type: 
  Country: None (occurrence: None)
  Receive Date: 20120323
  Receipt Date: 20111007
  Transmission Date: 20120825
  Serious: Yes (Hospitalization)
  Sender: FDA-Public Use
  Company Number: 163-21880-11101081

PATIENT
  Age: 63 Year
  Sex: Female
  Weight: 65.318 kg

DRUGS (10)
  1. HYDROCODONE BITARTRATE [Concomitant]
  2. FENTANYL [Concomitant]
  3. COUMADIN [Concomitant]
  4. REVLIMID [Suspect]
     Indication: MULTIPLE MYELOMA
     Dosage: 25 MG, 1 IN 1 D, PO
     Route: 048
     Dates: start: 20101001
  5. LOVENOX [Concomitant]
  6. DEXAMETHASONE [Concomitant]
  7. ANTIBIOTICS (ANTIBIOTICS) [Concomitant]
  8. PRILOSEC [Concomitant]
  9. IBUPROFEN [Concomitant]
  10. VALCYCLOVIR (VALCYCLOVIR HYDROCHLORIDE) [Concomitant]

REACTIONS (2)
  - PULMONARY EMBOLISM [None]
  - DEEP VEIN THROMBOSIS [None]
